FAERS Safety Report 12816925 (Version 1)
Quarter: 2016Q4

REPORT INFORMATION
  Report Type: Spontaneous
  Country: US (occurrence: US)
  Receive Date: 20161006
  Receipt Date: 20161006
  Transmission Date: 20170207
  Serious: No
  Sender: FDA-Public Use
  Company Number: US-PAR PHARMACEUTICAL, INC-2016SCPR015567

PATIENT

DRUGS (2)
  1. CHOLESTYRAMINE. [Suspect]
     Active Substance: CHOLESTYRAMINE
     Dosage: UNK, UNKNOWN
     Route: 048
     Dates: start: 201606
  2. CHOLESTYRAMINE. [Suspect]
     Active Substance: CHOLESTYRAMINE
     Indication: DIARRHOEA
     Dosage: UNK UNK, UNKNOWN
     Route: 048
     Dates: start: 2013

REACTIONS (4)
  - No adverse event [Unknown]
  - Poor quality drug administered [Unknown]
  - Product contamination physical [Unknown]
  - Product use issue [Unknown]

NARRATIVE: CASE EVENT DATE: 2013
